FAERS Safety Report 4407416-8 (Version None)
Quarter: 2004Q3

REPORT INFORMATION
  Report Type: 
  Country: None (occurrence: None)
  Receive Date: 20040723
  Receipt Date: 20040723
  Transmission Date: 20050211
  Serious: Yes (Hospitalization)
  Sender: FDA-Public Use
  Company Number: None

PATIENT

DRUGS (2)
  1. FUROSEMIDE [Suspect]
     Indication: CORONARY ARTERY DISEASE
     Dosage: 40 MG PO QD
     Route: 048
  2. SPIRONOLACTONE [Suspect]
     Indication: HYPERTENSION
     Dosage: 100 MG PO BID
     Route: 048

REACTIONS (1)
  - DEHYDRATION [None]
